FAERS Safety Report 16212022 (Version 1)
Quarter: 2019Q2

REPORT INFORMATION
  Report Type: Spontaneous
  Country: US (occurrence: US)
  Receive Date: 20190417
  Receipt Date: 20190417
  Transmission Date: 20190711
  Serious: No
  Sender: FDA-Public Use
  Company Number: None

PATIENT
  Age: 11 Year
  Sex: Male
  Weight: 43.65 kg

DRUGS (1)
  1. BRIVIACT [Suspect]
     Active Substance: BRIVARACETAM
     Indication: SEIZURE
     Dosage: ?          QUANTITY:60 TABLET(S);?
     Route: 048
     Dates: start: 20190318, end: 20190415

REACTIONS (5)
  - Defiant behaviour [None]
  - Product complaint [None]
  - Fatigue [None]
  - Aggression [None]
  - Suicidal behaviour [None]

NARRATIVE: CASE EVENT DATE: 20190415
